FAERS Safety Report 4582236-2 (Version None)
Quarter: 2005Q1

REPORT INFORMATION
  Report Type: 
  Country: None (occurrence: None)
  Receive Date: 20050210
  Receipt Date: 20050210
  Transmission Date: 20050727
  Serious: Yes (Hospitalization)
  Sender: FDA-Public Use
  Company Number: None

PATIENT
  Age: 62 Year
  Sex: Female
  Weight: 89 kg

DRUGS (8)
  1. IRESSA [Suspect]
     Indication: LUNG NEOPLASM MALIGNANT
     Dosage: 250 MG ID PO
     Route: 048
     Dates: start: 20041208, end: 20050105
  2. FASLODEX [Suspect]
     Indication: LUNG NEOPLASM MALIGNANT
     Dosage: 250 MG/D Q28 D IM
     Route: 030
     Dates: start: 20041208
  3. MORPHINE [Concomitant]
  4. DEXAMETHASONE [Concomitant]
  5. PREVACID [Concomitant]
  6. PAXIL [Concomitant]
  7. LIPID [Concomitant]
  8. TIAZAC [Concomitant]

REACTIONS (6)
  - COUGH [None]
  - DISEASE RECURRENCE [None]
  - DYSPNOEA [None]
  - INSOMNIA [None]
  - PLEURAL EFFUSION [None]
  - SPONDYLOARTHROPATHY [None]
